FAERS Safety Report 9652438 (Version 2)
Quarter: 2013Q4

REPORT INFORMATION
  Report Type: Spontaneous
  Country: US (occurrence: US)
  Receive Date: 20131029
  Receipt Date: 20131108
  Transmission Date: 20140711
  Serious: Yes (Other)
  Sender: FDA-Public Use
  Company Number: US-PFIZER INC-2013305453

PATIENT
  Age: 58 Year
  Sex: Male
  Weight: 93.88 kg

DRUGS (2)
  1. LIPITOR [Suspect]
     Indication: BLOOD CHOLESTEROL INCREASED
     Dosage: 40 MG, 1X/DAY
     Route: 048
     Dates: start: 2008
  2. BABY ASPIRIN [Concomitant]
     Dosage: UNK, 1X/DAY

REACTIONS (3)
  - Cerebrovascular accident [Unknown]
  - Peripheral arterial occlusive disease [Unknown]
  - Weight decreased [Unknown]
